FAERS Safety Report 8997639 (Version 2)
Quarter: 2013Q1

REPORT INFORMATION
  Report Type: Spontaneous
  Country: US (occurrence: US)
  Receive Date: 20130104
  Receipt Date: 20130214
  Transmission Date: 20140127
  Serious: No
  Sender: FDA-Public Use
  Company Number: US-009507513-1301USA001648

PATIENT
  Sex: Female
  Weight: 73.47 kg

DRUGS (3)
  1. CLARITIN [Suspect]
     Indication: HYPERSENSITIVITY
     Dosage: UNK, UNKNOWN
     Route: 048
     Dates: start: 1998
  2. ALBUTEROL [Concomitant]
     Indication: ASTHMA
     Dosage: UNK, UNKNOWN
     Route: 048
  3. MORPHINE [Concomitant]
     Indication: COMPLEX REGIONAL PAIN SYNDROME
     Dosage: UNK, UNKNOWN

REACTIONS (2)
  - Product package associated injury [Unknown]
  - Nausea [Recovered/Resolved]
